FAERS Safety Report 21969659 (Version 1)
Quarter: 2023Q1

REPORT INFORMATION
  Report Type: Spontaneous
  Country: ES (occurrence: ES)
  Receive Date: 20230208
  Receipt Date: 20230208
  Transmission Date: 20230417
  Serious: Yes (Other)
  Sender: FDA-Public Use
  Company Number: ES-SA-SAC20230208000543

PATIENT
  Age: 89 Year
  Sex: Male

DRUGS (1)
  1. CEMIPLIMAB [Suspect]
     Active Substance: CEMIPLIMAB
     Indication: Product used for unknown indication
     Route: 065

REACTIONS (3)
  - Tumour ulceration [Unknown]
  - Squamous cell carcinoma of skin [Unknown]
  - Skin mass [Unknown]
